FAERS Safety Report 9549827 (Version 3)
Quarter: 2013Q4

REPORT INFORMATION
  Report Type: Spontaneous
  Country: CA (occurrence: CA)
  Receive Date: 20130924
  Receipt Date: 20131030
  Transmission Date: 20140711
  Serious: Yes (Other)
  Sender: FDA-Public Use
  Company Number: CA-PFIZER INC-2013272540

PATIENT
  Age: 27 Year
  Sex: Female

DRUGS (3)
  1. PRISTIQ [Suspect]
     Indication: DEPRESSION
     Dosage: 50 MG, 1X/DAY
     Route: 048
     Dates: start: 201301
  2. PRISTIQ [Suspect]
     Dosage: 50 MG, ALTERNATE DAY
     Route: 048
  3. TRICYCLEN [Concomitant]
     Indication: CONTRACEPTION
     Dosage: UNK
     Dates: start: 201009

REACTIONS (3)
  - Retinal oedema [Not Recovered/Not Resolved]
  - Insomnia [Not Recovered/Not Resolved]
  - Intentional drug misuse [Not Recovered/Not Resolved]
